FAERS Safety Report 12106175 (Version 1)
Quarter: 2016Q1

REPORT INFORMATION
  Report Type: Spontaneous
  Country: US (occurrence: US)
  Receive Date: 20160223
  Receipt Date: 20160223
  Transmission Date: 20160526
  Serious: Yes (Other)
  Sender: FDA-Public Use
  Company Number: US-LUNDBECK-DKLU2010111

PATIENT
  Sex: Female

DRUGS (7)
  1. SABRIL [Suspect]
     Active Substance: VIGABATRIN
     Route: 065
  2. TOPAMAX [Concomitant]
     Active Substance: TOPIRAMATE
     Indication: PRODUCT USED FOR UNKNOWN INDICATION
     Route: 065
  3. SABRIL [Suspect]
     Active Substance: VIGABATRIN
     Indication: INFANTILE SPASMS
     Route: 065
     Dates: start: 20150904
  4. KEPPRA [Concomitant]
     Active Substance: LEVETIRACETAM
     Indication: PRODUCT USED FOR UNKNOWN INDICATION
     Route: 065
  5. SABRIL [Suspect]
     Active Substance: VIGABATRIN
     Route: 065
  6. ACTHAR [Concomitant]
     Active Substance: CORTICOTROPIN
     Indication: PRODUCT USED FOR UNKNOWN INDICATION
     Route: 065
  7. SABRIL [Suspect]
     Active Substance: VIGABATRIN
     Route: 065

REACTIONS (1)
  - Infantile spasms [Unknown]
